FAERS Safety Report 10081062 (Version 1)
Quarter: 2014Q2

REPORT INFORMATION
  Report Type: Spontaneous
  Country: US (occurrence: None)
  Receive Date: 20140415
  Receipt Date: 20140415
  Transmission Date: 20141212
  Serious: Yes (Other)
  Sender: FDA-Public Use
  Company Number: None

PATIENT
  Age: 58 Year
  Sex: Male
  Weight: 83.92 kg

DRUGS (4)
  1. GABAPENTIN [Suspect]
     Indication: NEURALGIA
     Dosage: T TABLET
     Route: 048
     Dates: start: 20140401, end: 20140407
  2. MORPHINE [Concomitant]
  3. HYDROCODONE/APAP [Concomitant]
  4. MELOXICAM [Concomitant]

REACTIONS (4)
  - Nausea [None]
  - Headache [None]
  - Dysgeusia [None]
  - No therapeutic response [None]
